FAERS Safety Report 9650825 (Version 1)
Quarter: 2013Q4

REPORT INFORMATION
  Report Type: Spontaneous
  Country: US (occurrence: US)
  Receive Date: 20131029
  Receipt Date: 20131029
  Transmission Date: 20140711
  Serious: No
  Sender: FDA-Public Use
  Company Number: US-JNJFOC-20131010378

PATIENT
  Age: 45 Year
  Sex: Male
  Weight: 124.29 kg

DRUGS (9)
  1. DURAGESIC [Suspect]
     Indication: PAIN
     Route: 062
     Dates: start: 20131001
  2. MOBIC [Concomitant]
     Route: 065
  3. GABAPENTIN [Concomitant]
     Route: 065
  4. BENAZEPRIL [Concomitant]
     Indication: DIURETIC THERAPY
     Route: 065
  5. BENAZEPRIL [Concomitant]
     Indication: HYPERTENSION
     Route: 065
  6. SYMBICORT [Concomitant]
     Indication: CHRONIC OBSTRUCTIVE PULMONARY DISEASE
     Route: 065
  7. SYMBICORT [Concomitant]
     Indication: ASTHMA
     Route: 065
  8. VENTOLIN [Concomitant]
     Indication: CHRONIC OBSTRUCTIVE PULMONARY DISEASE
     Route: 065
  9. VENTOLIN [Concomitant]
     Indication: ASTHMA
     Route: 065

REACTIONS (6)
  - Breakthrough pain [Not Recovered/Not Resolved]
  - Product quality issue [Unknown]
  - Product quality issue [Unknown]
  - Wrong technique in drug usage process [Not Recovered/Not Resolved]
  - Wrong technique in drug usage process [Unknown]
  - Pain [Recovered/Resolved]
